FAERS Safety Report 22263825 (Version 1)
Quarter: 2023Q2

REPORT INFORMATION
  Report Type: Other
  Country: GB (occurrence: GB)
  Receive Date: 20230428
  Receipt Date: 20230428
  Transmission Date: 20230721
  Serious: Yes (Life-Threatening, Disabling)
  Sender: FDA-Public Use
  Company Number: GB-MACLEODS PHARMACEUTICALS US LTD-MAC2023040952

PATIENT

DRUGS (1)
  1. ESCITALOPRAM [Suspect]
     Active Substance: ESCITALOPRAM OXALATE
     Indication: Suicidal behaviour
     Dosage: UNK, CAPSULE
     Route: 065

REACTIONS (7)
  - Suicide attempt [Not Recovered/Not Resolved]
  - Medication error [Unknown]
  - Premature ejaculation [Unknown]
  - Erectile dysfunction [Unknown]
  - Anhedonia [Unknown]
  - Loss of libido [Unknown]
  - Insomnia [Unknown]

NARRATIVE: CASE EVENT DATE: 20230321
